FAERS Safety Report 6030173-9 (Version None)
Quarter: 2008Q4

REPORT INFORMATION
  Report Type: 
  Country: None (occurrence: None)
  Receive Date: 20081222
  Receipt Date: 20081020
  Transmission Date: 20090506
  Serious: Yes (Other)
  Sender: FDA-Public Use
  Company Number: US-WYE-H06483708

PATIENT
  Age: 31 Year
  Sex: Male
  Weight: 137.11 kg

DRUGS (1)
  1. PRISTIQ [Suspect]
     Dosage: 50 MG 1X PER 1 DAY, ORAL
     Route: 048
     Dates: start: 20080804, end: 20080918

REACTIONS (1)
  - LIBIDO INCREASED [None]
